FAERS Safety Report 6459926-X (Version None)
Quarter: 2009Q4

REPORT INFORMATION
  Report Type: 
  Country: None (occurrence: None)
  Receive Date: 20091129
  Receipt Date: 20091116
  Transmission Date: 20100525
  Serious: Yes (Other)
  Sender: FDA-Public Use
  Company Number: PHHY2009DE50794

PATIENT
  Age: 56 Year
  Sex: Female
  Weight: 70 kg

DRUGS (1)
  1. DICLOFENAC [Suspect]
     Indication: NECROSIS
     Dosage: UNK
     Route: 048
     Dates: start: 20090301, end: 20090709

REACTIONS (2)
  - HEPATIC ENZYME INCREASED [None]
  - HIP SURGERY [None]
